FAERS Safety Report 12434065 (Version 1)
Quarter: 2016Q2

REPORT INFORMATION
  Report Type: Spontaneous
  Country: US (occurrence: US)
  Receive Date: 20160603
  Receipt Date: 20160603
  Transmission Date: 20160815
  Serious: No
  Sender: FDA-Public Use
  Company Number: US-BAYER-2016-100424

PATIENT
  Age: 60 Year
  Sex: Male
  Weight: 74.83 kg

DRUGS (3)
  1. ADVIL [Concomitant]
     Active Substance: IBUPROFEN
     Indication: MUSCLE STRAIN
     Dosage: 2 DF, QD
     Dates: start: 20160516
  2. ADVIL [IBUPROFEN] [Concomitant]
     Active Substance: IBUPROFEN
     Indication: MUSCLE STRAIN
     Dosage: 4-6 DF EVERY 6 HOURS AS NEEDED
     Dates: start: 2006
  3. ALEVE [Suspect]
     Active Substance: NAPROXEN SODIUM
     Dosage: UNK

REACTIONS (1)
  - Drug ineffective [None]
